FAERS Safety Report 10736186 (Version 1)
Quarter: 2015Q1

REPORT INFORMATION
  Report Type: Spontaneous
  Country: US (occurrence: None)
  Receive Date: 20150122
  Receipt Date: 20150122
  Transmission Date: 20150721
  Serious: Yes (Disabling, Other)
  Sender: FDA-Public Use
  Company Number: None

PATIENT
  Age: 58 Year
  Sex: Female
  Weight: 69.85 kg

DRUGS (2)
  1. PREVAGE CREAM [Suspect]
     Active Substance: AVOBENZONE\OCTINOXATE\OCTISALATE\OCTOCRYLENE\OXYBENZONE
     Indication: PREMATURE AGEING
  2. SYNTHROID [Concomitant]
     Active Substance: LEVOTHYROXINE SODIUM

REACTIONS (3)
  - Burning sensation [None]
  - Skin disorder [None]
  - Skin discolouration [None]

NARRATIVE: CASE EVENT DATE: 20150103
